FAERS Safety Report 21311384 (Version 5)
Quarter: 2022Q4

REPORT INFORMATION
  Report Type: Report from Study
  Country: US (occurrence: US)
  Receive Date: 20220909
  Receipt Date: 20221027
  Transmission Date: 20230112
  Serious: Yes (Hospitalization, Other)
  Sender: FDA-Public Use
  Company Number: US-GILEAD-2022-0596968

PATIENT
  Age: 68 Year
  Sex: Male
  Weight: 61.224 kg

DRUGS (4)
  1. AMBRISENTAN [Suspect]
     Active Substance: AMBRISENTAN
     Indication: Pulmonary hypertension
     Dosage: 10 MG, QD
     Route: 048
     Dates: start: 20120227
  2. AMBRISENTAN [Suspect]
     Active Substance: AMBRISENTAN
     Indication: Pulmonary arterial hypertension
  3. SILDENAFIL [Concomitant]
     Active Substance: SILDENAFIL
  4. OXYGEN [Concomitant]
     Active Substance: OXYGEN

REACTIONS (8)
  - Cardiac failure acute [Not Recovered/Not Resolved]
  - Seizure [Unknown]
  - Pulmonary arterial hypertension [Not Recovered/Not Resolved]
  - Syncope [Unknown]
  - Bacterial infection [Not Recovered/Not Resolved]
  - Nephropathy [Unknown]
  - Arthralgia [Not Recovered/Not Resolved]
  - Intentional dose omission [Not Recovered/Not Resolved]

NARRATIVE: CASE EVENT DATE: 20220901
